FAERS Safety Report 10150710 (Version 1)
Quarter: 2014Q2

REPORT INFORMATION
  Report Type: Report from Study
  Country: US (occurrence: US)
  Receive Date: 20140502
  Receipt Date: 20140502
  Transmission Date: 20141212
  Serious: Yes (Other)
  Sender: FDA-Public Use
  Company Number: US-BRISTOL-MYERS SQUIBB COMPANY-20668679

PATIENT
  Age: 65 Year
  Sex: Male
  Weight: 96.14 kg

DRUGS (6)
  1. ORENCIA [Suspect]
     Indication: RHEUMATOID ARTHRITIS
     Route: 042
     Dates: start: 201312
  2. ABATACEPT SUBQ INJECTION 125MG/ML [Suspect]
     Indication: RHEUMATOID ARTHRITIS
     Dosage: 1DF=1 125 MG/ML
     Route: 058
     Dates: start: 201401
  3. SYNTHROID [Concomitant]
  4. TAMSULOSIN [Concomitant]
  5. CYMBALTA [Concomitant]
  6. OMEPRAZOLE [Concomitant]

REACTIONS (7)
  - Glaucoma [Unknown]
  - Cataract [Unknown]
  - Insomnia [Unknown]
  - Headache [Unknown]
  - Vomiting [Unknown]
  - Drug ineffective [Unknown]
  - Nausea [Unknown]
